FAERS Safety Report 9493019 (Version 1)
Quarter: 2013Q3

REPORT INFORMATION
  Report Type: Spontaneous
  Country: US (occurrence: US)
  Receive Date: 20130902
  Receipt Date: 20130902
  Transmission Date: 20140515
  Serious: No
  Sender: FDA-Public Use
  Company Number: US-BIOGENIDEC-2013BI081766

PATIENT
  Age: 75 Year
  Sex: Male

DRUGS (4)
  1. AVONEX [Suspect]
     Indication: MULTIPLE SCLEROSIS
     Route: 030
     Dates: start: 20130606
  2. COPAXONE [Concomitant]
  3. LITHIUM CARBONATE [Concomitant]
  4. WELLBUTRIN SR [Concomitant]

REACTIONS (1)
  - Rib fracture [Unknown]
